FAERS Safety Report 8517675-8 (Version None)
Quarter: 2012Q3

REPORT INFORMATION
  Report Type: 
  Country: None (occurrence: None)
  Receive Date: 20120718
  Receipt Date: 20120711
  Transmission Date: 20120928
  Serious: Yes (Death, Hospitalization)
  Sender: FDA-Public Use
  Company Number: AU-CELGENEUS-008-21880-12071021

PATIENT
  Sex: Male

DRUGS (1)
  1. REVLIMID [Suspect]
     Dosage: 10 MILLIGRAM
     Route: 048
     Dates: start: 20120614, end: 20120618

REACTIONS (5)
  - INFECTION [None]
  - ANAEMIA [None]
  - ANGINA PECTORIS [None]
  - RASH [None]
  - MULTI-ORGAN FAILURE [None]
